FAERS Safety Report 9246776 (Version 7)
Quarter: 2013Q3

REPORT INFORMATION
  Report Type: Spontaneous
  Country: FR (occurrence: FR)
  Receive Date: 20130422
  Receipt Date: 20130924
  Transmission Date: 20140515
  Serious: Yes (Congenital Anomaly, Other)
  Sender: FDA-Public Use
  Company Number: FR-GILEAD-2013-0073522

PATIENT
  Sex: Male

DRUGS (8)
  1. TRUVADA [Suspect]
     Indication: HIV INFECTION
     Dosage: UNK
     Route: 064
     Dates: start: 20111018, end: 20111026
  2. DARUNAVIR [Concomitant]
     Indication: HIV INFECTION
     Dosage: UNK
     Route: 064
     Dates: start: 20111018, end: 20111026
  3. RITONAVIR [Concomitant]
     Indication: HIV INFECTION
     Dosage: UNK
     Route: 064
     Dates: start: 20111018, end: 20111026
  4. ISENTRESS [Concomitant]
     Indication: HIV INFECTION
     Dosage: UNK
     Route: 064
     Dates: start: 20111018, end: 20111026
  5. RETROVIR [Concomitant]
     Dosage: UNK
     Route: 064
     Dates: start: 20111026, end: 20111026
  6. VIRAMUNE [Concomitant]
     Dosage: 1 DF, TOTAL
     Dates: start: 20111026
  7. ZIDOVUDINE [Concomitant]
  8. LAMIVUDINE [Concomitant]

REACTIONS (3)
  - Mitral valve incompetence [Not Recovered/Not Resolved]
  - Left atrial dilatation [Not Recovered/Not Resolved]
  - Dilatation ventricular [Not Recovered/Not Resolved]
